FAERS Safety Report 8382251-7 (Version None)
Quarter: 2012Q2

REPORT INFORMATION
  Report Type: 
  Country: None (occurrence: None)
  Receive Date: 20120524
  Receipt Date: 20120509
  Transmission Date: 20120825
  Serious: Yes (Other)
  Sender: FDA-Public Use
  Company Number: MX-JNJFOC-20120511335

PATIENT
  Sex: Male
  Weight: 69 kg

DRUGS (5)
  1. METHOTREXATE [Concomitant]
     Route: 065
     Dates: start: 20110301
  2. FOLIC ACID [Concomitant]
     Route: 065
     Dates: start: 20110301
  3. HYDROXYCHLOROQUINE SULFATE [Concomitant]
     Route: 065
     Dates: start: 20110301
  4. DICLOFENAC SODIUM [Concomitant]
     Route: 065
     Dates: start: 20110301
  5. REMICADE [Suspect]
     Indication: RHEUMATOID ARTHRITIS
     Route: 042
     Dates: start: 20110628, end: 20120220

REACTIONS (1)
  - PERITONEAL TUBERCULOSIS [None]
